FAERS Safety Report 5480522-5 (Version None)
Quarter: 2007Q4

REPORT INFORMATION
  Report Type: 
  Country: None (occurrence: None)
  Receive Date: 20071009
  Receipt Date: 20071002
  Transmission Date: 20080405
  Serious: Yes (Hospitalization, Other)
  Sender: FDA-Public Use
  Company Number: PHEH2006US02721

PATIENT
  Age: 71 Year
  Sex: Female

DRUGS (7)
  1. VALIUM [Concomitant]
     Dosage: UNK, PRN
  2. AMBIEN [Concomitant]
     Dosage: UNK, PRN
  3. ZOMETA [Suspect]
     Indication: OSTEOPOROSIS
     Dosage: UNK, ONCE YEARLY
     Dates: start: 20040201
  4. SYNTHROID [Concomitant]
  5. OXYCONTIN [Concomitant]
  6. FORTEO [Concomitant]
  7. COZAAR [Concomitant]
     Dates: start: 20030101

REACTIONS (24)
  - ALVEOLAR OSTEITIS [None]
  - BODY TEMPERATURE DECREASED [None]
  - BONE DEBRIDEMENT [None]
  - BONE DISORDER [None]
  - BONE SWELLING [None]
  - DENTAL TREATMENT [None]
  - ENDODONTIC PROCEDURE [None]
  - ERYTHEMA [None]
  - HEART RATE DECREASED [None]
  - HYPOTENSION [None]
  - IMPAIRED HEALING [None]
  - LOCAL SWELLING [None]
  - MALAISE [None]
  - ORAL DISORDER [None]
  - OSTEOMYELITIS [None]
  - PAIN [None]
  - PAIN IN JAW [None]
  - PHARYNGITIS STREPTOCOCCAL [None]
  - PURULENCE [None]
  - SOFT TISSUE INFECTION [None]
  - SUTURE INSERTION [None]
  - TOOTH EXTRACTION [None]
  - TOOTH FRACTURE [None]
  - TOOTH LOSS [None]
